FAERS Safety Report 26201215 (Version 1)
Quarter: 2025Q4

REPORT INFORMATION
  Report Type: Spontaneous
  Country: JP (occurrence: JP)
  Receive Date: 20251226
  Receipt Date: 20251226
  Transmission Date: 20260117
  Serious: Yes (Other)
  Sender: MERCK SHARP & DOHME LLC
  Company Number: JP-009507513-2363933

PATIENT
  Age: 53 Year
  Sex: Female

DRUGS (2)
  1. KEYTRUDA [Suspect]
     Active Substance: PEMBROLIZUMAB
     Indication: Endometrial cancer stage IV
     Route: 065
  2. LENVATINIB [Suspect]
     Active Substance: LENVATINIB
     Indication: Endometrial cancer stage IV
     Route: 065

REACTIONS (2)
  - Cerebral infarction [Unknown]
  - Malignant neoplasm progression [Unknown]
